FAERS Safety Report 12227883 (Version 1)
Quarter: 2016Q2

REPORT INFORMATION
  Report Type: Spontaneous
  Country: US (occurrence: US)
  Receive Date: 20160401
  Receipt Date: 20160401
  Transmission Date: 20160815
  Serious: Yes (Other)
  Sender: FDA-Public Use
  Company Number: US-BEH-2016060555

PATIENT
  Age: 53 Year
  Sex: Female
  Weight: 74 kg

DRUGS (20)
  1. HIZENTRA [Suspect]
     Active Substance: HUMAN IMMUNOGLOBULIN G
     Indication: ASTHMA
     Route: 058
  2. QNASL [Concomitant]
     Active Substance: BECLOMETHASONE DIPROPIONATE
  3. CLARITIN [Concomitant]
     Active Substance: LORATADINE
  4. MUCINEX [Concomitant]
     Active Substance: GUAIFENESIN
  5. ACETAMINOPHEN. [Concomitant]
     Active Substance: ACETAMINOPHEN
  6. CAFFEINE. [Concomitant]
     Active Substance: CAFFEINE
  7. DIPHENHYDRAMINE. [Concomitant]
     Active Substance: DIPHENHYDRAMINE
  8. PREDNISONE. [Concomitant]
     Active Substance: PREDNISONE
  9. MULTIVITAMINS [Concomitant]
     Active Substance: VITAMINS
  10. XOLAIR [Concomitant]
     Active Substance: OMALIZUMAB
  11. VITAMIN D [Concomitant]
     Active Substance: CHOLECALCIFEROL
  12. CALCIUM [Concomitant]
     Active Substance: CALCIUM
  13. LIPITOR [Concomitant]
     Active Substance: ATORVASTATIN CALCIUM
  14. L-M-X [Concomitant]
  15. VITAMIN B [Concomitant]
     Active Substance: VITAMIN B
  16. PROAIR HFA [Concomitant]
     Active Substance: ALBUTEROL SULFATE
  17. EPIPEN [Concomitant]
     Active Substance: EPINEPHRINE
  18. SYMBICORT [Concomitant]
     Active Substance: BUDESONIDE\FORMOTEROL FUMARATE DIHYDRATE
  19. VITAMIN C [Concomitant]
     Active Substance: ASCORBIC ACID
  20. ZOFRAN [Concomitant]
     Active Substance: ONDANSETRON HYDROCHLORIDE

REACTIONS (2)
  - Influenza [Unknown]
  - Lung infection [Unknown]

NARRATIVE: CASE EVENT DATE: 20160307
